FAERS Safety Report 8964085 (Version 2)
Quarter: 2015Q3

REPORT INFORMATION
  Report Type: Spontaneous
  Country: US (occurrence: US)
  Receive Date: 20121213
  Receipt Date: 20150724
  Transmission Date: 20151125
  Serious: Yes (Life-Threatening, Other)
  Sender: FDA-Public Use
  Company Number: CHPA2012US025239

PATIENT
  Age: 75 Year
  Sex: Male

DRUGS (4)
  1. MAALOX ANTACID [Suspect]
     Active Substance: ALUMINUM HYDROXIDE\DIMETHICONE\MAGNESIUM HYDROXIDE
     Indication: ABDOMINAL PAIN UPPER
     Dosage: SWALLOW SOME 3 X A DAY
     Route: 048
     Dates: start: 2010
  2. MAALOX ANTACID [Suspect]
     Active Substance: ALUMINUM HYDROXIDE\DIMETHICONE\MAGNESIUM HYDROXIDE
     Indication: BACK PAIN
     Dosage: UNK
     Route: 048
  3. NEXIUM [Suspect]
     Active Substance: ESOMEPRAZOLE MAGNESIUM
     Indication: PRODUCT USED FOR UNKNOWN INDICATION
     Route: 065
  4. FLEXAMIN [Suspect]
     Active Substance: CHONDROITIN SULFATE (BOVINE)\GLUCOSAMINE SULFATE
     Indication: PRODUCT USED FOR UNKNOWN INDICATION
     Route: 065

REACTIONS (12)
  - Hypertension [Unknown]
  - Faeces discoloured [Recovered/Resolved]
  - Feeling abnormal [Unknown]
  - Ligament injury [Unknown]
  - Bone disorder [Unknown]
  - Carpal tunnel syndrome [Unknown]
  - Incorrect drug administration duration [Unknown]
  - Wrong technique in product usage process [Unknown]
  - Arthritis [Unknown]
  - Prostate tenderness [Unknown]
  - Abdominal pain upper [Unknown]
  - Product use issue [Unknown]

NARRATIVE: CASE EVENT DATE: 2010
